FAERS Safety Report 4385494-2 (Version None)
Quarter: 2004Q2

REPORT INFORMATION
  Report Type: 
  Country: None (occurrence: None)
  Receive Date: 20040622
  Receipt Date: 20040607
  Transmission Date: 20050107
  Serious: Yes (Death, Other)
  Sender: FDA-Public Use
  Company Number: 2004-SW-00165DB

PATIENT
  Age: 46 Year
  Sex: Male

DRUGS (3)
  1. VIRAMUNE [Suspect]
     Indication: HIV INFECTION
     Dosage: 400 MG (200 MG)
     Dates: start: 20040420
  2. VIREAD [Concomitant]
  3. EPIVIR [Concomitant]

REACTIONS (1)
  - HEPATIC FAILURE [None]
